FAERS Safety Report 9063424 (Version 2)
Quarter: 2013Q1

REPORT INFORMATION
  Report Type: Spontaneous
  Country: BR (occurrence: BR)
  Receive Date: 20130213
  Receipt Date: 20130311
  Transmission Date: 20140127
  Serious: Yes (Other)
  Sender: FDA-Public Use
  Company Number: PHHY2012BR066835

PATIENT
  Sex: Female
  Weight: 93 kg

DRUGS (5)
  1. DIOVAN TRIPLE [Suspect]
     Indication: BLOOD PRESSURE
     Dosage: 2 DF, A DAY
     Route: 048
  2. CRESTOR [Concomitant]
     Indication: BLOOD CHOLESTEROL INCREASED
     Dosage: 1 DF, QD
     Route: 048
  3. METFORMIN [Concomitant]
     Indication: DIABETES PROPHYLAXIS
     Dosage: 2 DF, A DAY
     Route: 048
  4. LEXOTAN [Concomitant]
     Indication: TENSION
     Dosage: 1 DF, A DAY
     Route: 048
  5. OMEPRAZOLE [Concomitant]
     Indication: ABDOMINAL DISCOMFORT
     Dosage: 1 DF, A DAY
     Route: 048

REACTIONS (3)
  - Mastocytosis [Recovering/Resolving]
  - Skin burning sensation [Unknown]
  - Dyspepsia [Not Recovered/Not Resolved]
